FAERS Safety Report 7639471-6 (Version None)
Quarter: 2011Q3

REPORT INFORMATION
  Report Type: 
  Country: None (occurrence: None)
  Receive Date: 20110727
  Receipt Date: 20110721
  Transmission Date: 20111222
  Serious: Yes (Other)
  Sender: FDA-Public Use
  Company Number: US-GLAXOSMITHKLINE-A0937568A

PATIENT
  Sex: Female

DRUGS (1)
  1. ZOFRAN [Suspect]
     Indication: PROPHYLAXIS OF NAUSEA AND VOMITING
     Dosage: 1TAB AS REQUIRED
     Route: 048
     Dates: start: 19960101

REACTIONS (3)
  - ANGIOEDEMA [None]
  - FIBROMYALGIA [None]
  - WEIGHT DECREASED [None]
